FAERS Safety Report 8137942-X (Version None)
Quarter: 2012Q1

REPORT INFORMATION
  Report Type: 
  Country: None (occurrence: None)
  Receive Date: 20120103
  Receipt Date: 20110904
  Transmission Date: 20120608
  Serious: No
  Sender: FDA-Public Use
  Company Number: AE-2011-001323

PATIENT
  Age: 57 Year
  Sex: Female
  Weight: 97.5234 kg

DRUGS (3)
  1. INCIVEK [Suspect]
     Dosage: 2250 MG (750 MG, 1 IN 8 HR), ORAL
     Route: 048
     Dates: start: 20110818
  2. PEGASYS [Concomitant]
  3. COPEGUS [Concomitant]

REACTIONS (7)
  - CHILLS [None]
  - RASH VESICULAR [None]
  - NAUSEA [None]
  - DIZZINESS [None]
  - HEADACHE [None]
  - ANAL PRURITUS [None]
  - PRURITUS [None]
